FAERS Safety Report 25164796 (Version 1)
Quarter: 2025Q2

REPORT INFORMATION
  Report Type: Spontaneous
  Country: GB (occurrence: GB)
  Receive Date: 20250406
  Receipt Date: 20250406
  Transmission Date: 20250716
  Serious: Yes (Disabling, Other)
  Sender: BOEHRINGER INGELHEIM
  Company Number: None

PATIENT

DRUGS (10)
  1. JARDIANCE [Suspect]
     Active Substance: EMPAGLIFLOZIN
     Indication: Product used for unknown indication
  2. INDAPAMIDE [Suspect]
     Active Substance: INDAPAMIDE
     Indication: Blood pressure abnormal
  3. MOUNJARO [Suspect]
     Active Substance: TIRZEPATIDE
     Indication: Product used for unknown indication
  4. OLMESARTAN [Concomitant]
     Active Substance: OLMESARTAN
     Indication: Blood pressure abnormal
  5. AMLODIPINE [Concomitant]
     Active Substance: AMLODIPINE BESYLATE
     Indication: Product used for unknown indication
  6. Levothyroxine (225mcg) [Concomitant]
     Indication: Product used for unknown indication
  7. Levothyroxine (225mcg) [Concomitant]
  8. TESTOSTERONE [Concomitant]
     Active Substance: TESTOSTERONE
     Indication: Product used for unknown indication
  9. CABERGOLINE [Concomitant]
     Active Substance: CABERGOLINE
     Indication: Product used for unknown indication
  10. Omnitrope (GH) [Concomitant]
     Indication: Product used for unknown indication

REACTIONS (13)
  - Dehydration [Unknown]
  - Pollakiuria [Unknown]
  - Muscle fatigue [Unknown]
  - Swelling face [Unknown]
  - Headache [Unknown]
  - Cognitive disorder [Unknown]
  - Sensory disturbance [Unknown]
  - Orthostatic intolerance [Unknown]
  - Impaired quality of life [Unknown]
  - Memory impairment [Unknown]
  - Blood pressure increased [Unknown]
  - Fluid imbalance [Unknown]
  - Confusional state [Unknown]
